FAERS Safety Report 22085019 (Version 4)
Quarter: 2023Q2

REPORT INFORMATION
  Report Type: Report from Study
  Country: KR (occurrence: KR)
  Receive Date: 20230310
  Receipt Date: 20230616
  Transmission Date: 20230721
  Serious: Yes (Hospitalization)
  Sender: FDA-Public Use
  Company Number: KR-SA-SAC20230303000611

PATIENT
  Age: 64 Year
  Sex: Male

DRUGS (6)
  1. CEMIPLIMAB [Suspect]
     Active Substance: CEMIPLIMAB
     Indication: T-cell lymphoma refractory
     Dosage: 250 MG, QOW
     Route: 042
     Dates: start: 20221110, end: 20221110
  2. CEMIPLIMAB [Suspect]
     Active Substance: CEMIPLIMAB
     Dosage: 250 MG
     Route: 042
     Dates: start: 20230228, end: 20230228
  3. ISATUXIMAB [Suspect]
     Active Substance: ISATUXIMAB
     Indication: T-cell lymphoma refractory
     Dosage: 830 MG, QOW
     Route: 042
     Dates: start: 20221111, end: 20221111
  4. ISATUXIMAB [Suspect]
     Active Substance: ISATUXIMAB
     Dosage: 830 MG, QOW
     Route: 042
     Dates: start: 20230228, end: 20230228
  5. LYRICA [Concomitant]
     Active Substance: PREGABALIN
     Indication: Product used for unknown indication
     Dosage: 75 MG, BID
     Route: 048
     Dates: start: 20230228, end: 20230314
  6. SEROQUEL [Concomitant]
     Active Substance: QUETIAPINE FUMARATE
     Indication: Product used for unknown indication
     Dosage: 12.5 MG, QD
     Route: 048
     Dates: start: 20230222, end: 20230314

REACTIONS (3)
  - Peripheral motor neuropathy [Not Recovered/Not Resolved]
  - Cerebral infarction [Recovered/Resolved]
  - Transaminases increased [Recovered/Resolved]

NARRATIVE: CASE EVENT DATE: 20230102
